FAERS Safety Report 6035314-5 (Version None)
Quarter: 2009Q1

REPORT INFORMATION
  Report Type: 
  Country: None (occurrence: None)
  Receive Date: 20090108
  Receipt Date: 20081224
  Transmission Date: 20090719
  Serious: Yes (Hospitalization)
  Sender: FDA-Public Use
  Company Number: 220006N08FRA

PATIENT
  Age: 37 Year
  Sex: Female
  Weight: 60 kg

DRUGS (12)
  1. SAIZEN [Suspect]
     Indication: BLOOD GROWTH HORMONE DECREASED
     Dosage: SEE IMAGE
     Route: 058
     Dates: start: 20070820, end: 20070828
  2. SAIZEN [Suspect]
     Indication: BLOOD GROWTH HORMONE DECREASED
     Dosage: SEE IMAGE
     Route: 058
     Dates: start: 20041015
  3. HYDROCORTISON (HYDROCORTISON/00028601/) [Concomitant]
  4. MAGNE B6 (MAGNESIUM W/VITAMIN B6) [Concomitant]
  5. POTASSIUM CHLORIDE [Concomitant]
  6. LEXOMIL (BROMAZEPAM) [Concomitant]
  7. CITALOPRAM (CITALOPRAM /00582601/) [Concomitant]
  8. AMITRIPTYLINE HCL [Concomitant]
  9. ANDROCUR 50 (CYPROTERONE ACETATE) [Concomitant]
  10. ESTREVA (ESTRADIOL /00045401/) [Concomitant]
  11. TAHOR (ATORVASTATIN SODIUM) [Concomitant]
  12. DOSTINEX 0.5 (CABERGOLINE) [Concomitant]

REACTIONS (8)
  - CONDITION AGGRAVATED [None]
  - DEPRESSION [None]
  - DYSLIPIDAEMIA [None]
  - GASTROINTESTINAL DISORDER [None]
  - HYPERPROLACTINAEMIA [None]
  - MAGNESIUM DEFICIENCY [None]
  - MENINGIOMA [None]
  - POLYCYSTIC OVARIES [None]
